FAERS Safety Report 8900523 (Version 1)
Quarter: 2012Q4

REPORT INFORMATION
  Report Type: 
  Country: US (occurrence: US)
  Receive Date: 20121108
  Receipt Date: 20121108
  Transmission Date: 20130627
  Serious: No
  Sender: FDA-Public Use
  Company Number: US-AMGEN-USASP2012038416

PATIENT
  Age: 50 Year
  Sex: Female

DRUGS (5)
  1. ENBREL [Suspect]
     Indication: PRODUCT USED FOR UNKNOWN INDICATION
     Dosage: 50 mg/ml
     Route: 058
  2. METOPROL ZOK MEPHA [Concomitant]
     Dosage: 50 mg, UNK
  3. VALIUM                             /00017001/ [Concomitant]
     Dosage: 2 mg, UNK
  4. OXYCONTIN [Concomitant]
     Dosage: 10 mg, UNK
  5. NUCYNTA [Concomitant]
     Dosage: 100 mg, UNK

REACTIONS (1)
  - Urinary tract infection [Recovered/Resolved]
